FAERS Safety Report 10405690 (Version 5)
Quarter: 2014Q4

REPORT INFORMATION
  Report Type: Report from Study
  Country: NZ (occurrence: NZ)
  Receive Date: 20140825
  Receipt Date: 20141009
  Transmission Date: 20150528
  Serious: Yes (Life-Threatening, Hospitalization, Other)
  Sender: FDA-Public Use
  Company Number: PHHO2013NZ008848

PATIENT
  Age: 85 Year
  Sex: Male
  Weight: 90.9 kg

DRUGS (11)
  1. ICL670A [Suspect]
     Active Substance: DEFERASIROX
     Indication: IRON OVERLOAD
     Dosage: 10 MG/KG, QD
     Route: 048
     Dates: start: 20130515
  2. AVASTIN [Concomitant]
     Active Substance: BEVACIZUMAB
     Indication: MACULAR DEGENERATION
     Dosage: PER EYE 5-6, WEEKLY
     Route: 047
     Dates: start: 20110704, end: 201306
  3. ROSUVASTATIN [Concomitant]
     Active Substance: ROSUVASTATIN
     Indication: PROPHYLAXIS
     Dosage: 40 MG, QD
     Route: 048
     Dates: start: 20111121, end: 20130703
  4. ICL670A [Suspect]
     Active Substance: DEFERASIROX
     Dosage: 20 MG/KG, QD
     Route: 048
     Dates: start: 20130529, end: 20130606
  5. METFORMIN [Concomitant]
     Active Substance: METFORMIN HYDROCHLORIDE
     Indication: GLUCOSE TOLERANCE IMPAIRED
     Dosage: 500 MG, BID
     Route: 048
     Dates: start: 20130626, end: 20130703
  6. ETORICOXIB [Suspect]
     Active Substance: ETORICOXIB
     Dosage: 20 MG, DAILY
     Route: 048
     Dates: start: 20130630, end: 20130703
  7. ETORICOXIB [Suspect]
     Active Substance: ETORICOXIB
     Indication: BACK PAIN
     Dosage: 20 MG, BID
     Route: 048
     Dates: start: 20130626, end: 20130629
  8. ERYTHROPOIETIN [Concomitant]
     Active Substance: ERYTHROPOIETIN
     Indication: MYELODYSPLASTIC SYNDROME
     Dosage: 10000 U, QW
     Route: 058
     Dates: start: 20100830
  9. MAGNESIUM [Concomitant]
     Active Substance: MAGNESIUM
     Indication: PROPHYLAXIS
     Dosage: 500 MG, QD
     Route: 048
     Dates: start: 201302, end: 20130703
  10. ICL670A [Suspect]
     Active Substance: DEFERASIROX
     Dosage: 10 MG/KG, QD
     Route: 048
     Dates: start: 20130611, end: 20130701
  11. ASPIRIN. [Concomitant]
     Active Substance: ASPIRIN
     Indication: PROPHYLAXIS
     Dosage: 50 MG, QD
     Route: 048
     Dates: start: 20060726, end: 20130703

REACTIONS (8)
  - Joint swelling [Recovering/Resolving]
  - Oedema peripheral [Recovering/Resolving]
  - Diarrhoea [Recovered/Resolved]
  - Escherichia sepsis [Recovered/Resolved]
  - Acute kidney injury [Recovered/Resolved]
  - Back pain [Recovered/Resolved]
  - Soft tissue injury [Recovered/Resolved]
  - Dehydration [Recovered/Resolved]

NARRATIVE: CASE EVENT DATE: 201306
